FAERS Safety Report 5319433-4 (Version None)
Quarter: 2007Q2

REPORT INFORMATION
  Report Type: 
  Country: None (occurrence: None)
  Receive Date: 20070508
  Receipt Date: 20070426
  Transmission Date: 20071010
  Serious: Yes (Death, Other)
  Sender: FDA-Public Use
  Company Number: GB-ELI_LILLY_AND_COMPANY-GB200704006135

PATIENT
  Age: 73 Year
  Sex: Male
  Weight: 61.2 kg

DRUGS (5)
  1. ADCAL [Concomitant]
     Dosage: 1.5 G, 2/D
     Route: 048
  2. ASPIRIN [Concomitant]
     Dosage: 75 MG, UNK
     Route: 048
  3. SENNA [Concomitant]
     Dosage: 15 MG, UNK
     Route: 048
  4. VALPROATE SODIUM [Concomitant]
     Indication: CONVULSION
     Dosage: 200 MG, 2/D
     Route: 048
     Dates: end: 20050519
  5. FLUOXETINE [Suspect]
     Indication: DEPRESSION
     Dosage: 40 MG, UNK
     Route: 048
     Dates: start: 20050511, end: 20050519

REACTIONS (4)
  - CHOREA [None]
  - DEMENTIA [None]
  - HYPERNATRAEMIA [None]
  - SUBARACHNOID HAEMORRHAGE [None]
